FAERS Safety Report 7762665-6 (Version None)
Quarter: 2011Q3

REPORT INFORMATION
  Report Type: 
  Country: None (occurrence: None)
  Receive Date: 20110920
  Receipt Date: 20110915
  Transmission Date: 20111222
  Serious: No
  Sender: FDA-Public Use
  Company Number: US-TEVA-298337USA

PATIENT
  Sex: Female

DRUGS (1)
  1. COPAXONE [Suspect]
     Indication: MULTIPLE SCLEROSIS
     Route: 058

REACTIONS (5)
  - NAUSEA [None]
  - INJECTION SITE PAIN [None]
  - FEELING HOT [None]
  - FLUSHING [None]
  - BOWEL MOVEMENT IRREGULARITY [None]
